FAERS Safety Report 9469351 (Version 1)
Quarter: 2013Q3

REPORT INFORMATION
  Report Type: Spontaneous
  Country: US (occurrence: None)
  Receive Date: 20130815
  Receipt Date: 20130815
  Transmission Date: 20140515
  Serious: Yes (Hospitalization)
  Sender: FDA-Public Use
  Company Number: 2013PL000120

PATIENT
  Age: 58 Year
  Sex: Male

DRUGS (1)
  1. ZYLOPRIM [Suspect]
     Indication: GOUT

REACTIONS (1)
  - Drug reaction with eosinophilia and systemic symptoms [None]
